FAERS Safety Report 15961385 (Version 1)
Quarter: 2019Q1

REPORT INFORMATION
  Report Type: Spontaneous
  Country: US (occurrence: US)
  Receive Date: 20190214
  Receipt Date: 20190214
  Transmission Date: 20190417
  Serious: No
  Sender: FDA-Public Use
  Company Number: US-VERTEX PHARMACEUTICALS-2019-001203

PATIENT
  Age: 11 Year
  Sex: Female

DRUGS (8)
  1. LANSOPRAZOLE. [Concomitant]
     Active Substance: LANSOPRAZOLE
  2. KEFLEX [Concomitant]
     Active Substance: CEPHALEXIN
  3. PULMOZYME [Concomitant]
     Active Substance: DORNASE ALFA
  4. NORDITROPIN [Concomitant]
     Active Substance: SOMATROPIN
  5. EXLAX                              /00221401/ [Concomitant]
     Active Substance: PHENOLPHTHALEIN
  6. ORKAMBI [Suspect]
     Active Substance: IVACAFTOR\LUMACAFTOR
     Indication: CYSTIC FIBROSIS
     Dosage: 200/250 MG, BID
     Route: 048
     Dates: start: 20170407
  7. URSODIOL. [Concomitant]
     Active Substance: URSODIOL
  8. TUMS EX [Concomitant]
     Active Substance: CALCIUM CARBONATE

REACTIONS (2)
  - Influenza [Unknown]
  - Ear infection [Unknown]

NARRATIVE: CASE EVENT DATE: 20190105
